FAERS Safety Report 8225416 (Version 2)
Quarter: 2012Q4

REPORT INFORMATION
  Report Type: 
  Country: AU (occurrence: AU)
  Receive Date: 20111103
  Receipt Date: 20121219
  Transmission Date: 20130627
  Serious: Yes (Other)
  Sender: FDA-Public Use
  Company Number: PHHY2011AU95951

PATIENT
  Age: 77 Year
  Sex: Male

DRUGS (4)
  1. ACLASTA [Suspect]
     Dosage: 5 mg
     Route: 042
  2. ACLASTA [Suspect]
     Dosage: 5 mg
     Route: 042
  3. ACLASTA [Suspect]
     Dosage: 5 mg
     Route: 042
     Dates: start: 20101118
  4. ACLASTA [Suspect]
     Dosage: 5 mg
     Route: 042
     Dates: start: 20111027

REACTIONS (4)
  - Heart rate decreased [Recovered/Resolved]
  - Blood pressure decreased [Unknown]
  - Incorrect dose administered [Unknown]
  - Dizziness [Recovered/Resolved]
